FAERS Safety Report 12851242 (Version 2)
Quarter: 2016Q4

REPORT INFORMATION
  Report Type: Spontaneous
  Country: JP (occurrence: JP)
  Receive Date: 20161015
  Receipt Date: 20161026
  Transmission Date: 20170207
  Serious: No
  Sender: FDA-Public Use
  Company Number: JP-AMGEN-JPNSP2016142846

PATIENT
  Age: 72 Year
  Sex: Female

DRUGS (1)
  1. PRALIA [Suspect]
     Active Substance: DENOSUMAB
     Indication: OSTEOPOROSIS
     Dosage: UNK, ONE TIME DOSE
     Route: 065
     Dates: start: 20160914

REACTIONS (2)
  - Blood calcium decreased [Recovered/Resolved]
  - Blood parathyroid hormone increased [Not Recovered/Not Resolved]
